FAERS Safety Report 14895696 (Version 1)
Quarter: 2018Q2

REPORT INFORMATION
  Report Type: Report from Study
  Country: US (occurrence: US)
  Receive Date: 20180515
  Receipt Date: 20180515
  Transmission Date: 20180711
  Serious: Yes (Other)
  Sender: FDA-Public Use
  Company Number: US-ROCHE-2110282

PATIENT
  Age: 33 Year
  Sex: Female
  Weight: 91.6 kg

DRUGS (14)
  1. TYLENOL [Concomitant]
     Active Substance: ACETAMINOPHEN
     Indication: PREMEDICATION
     Dosage: ONGOING: UNKNOWN
     Route: 065
  2. FLEXERIL [Concomitant]
     Active Substance: CYCLOBENZAPRINE HYDROCHLORIDE
     Route: 065
  3. ACTHAR [Concomitant]
     Active Substance: CORTICOTROPIN
     Dosage: 80 UNITS; QD FOR 7 DAYS
     Route: 058
  4. VALIUM [Suspect]
     Active Substance: DIAZEPAM
     Indication: PRODUCT USED FOR UNKNOWN INDICATION
     Route: 048
  5. MEDROL [Concomitant]
     Active Substance: METHYLPREDNISOLONE
     Route: 065
  6. AMBIEN [Concomitant]
     Active Substance: ZOLPIDEM TARTRATE
     Route: 065
  7. BENADRYL [Concomitant]
     Active Substance: DIPHENHYDRAMINE HYDROCHLORIDE
     Indication: PREMEDICATION
     Dosage: ONGOING: UNKNOWN
     Route: 065
  8. ACTHAR [Concomitant]
     Active Substance: CORTICOTROPIN
     Dosage: DOSE: 80 UNIT/ML
     Route: 065
     Dates: start: 20160320
  9. IBUPROFEN. [Concomitant]
     Active Substance: IBUPROFEN
     Indication: PAIN
     Dosage: OVER THE COUNTER ;ONGOING: UNKNOWN
     Route: 065
  10. IBUPROFEN. [Concomitant]
     Active Substance: IBUPROFEN
     Route: 065
  11. LUNESTA [Concomitant]
     Active Substance: ESZOPICLONE
     Indication: PREMEDICATION
     Dosage: NIGHTLY
     Route: 048
     Dates: start: 20180320
  12. ACTHAR [Concomitant]
     Active Substance: CORTICOTROPIN
     Indication: MULTIPLE SCLEROSIS
     Route: 065
     Dates: start: 20160320
  13. MOTRIN [Concomitant]
     Active Substance: IBUPROFEN
     Indication: PAIN
     Dosage: PRN
     Route: 048
  14. OCREVUS [Suspect]
     Active Substance: OCRELIZUMAB
     Indication: MULTIPLE SCLEROSIS
     Route: 042
     Dates: start: 201804

REACTIONS (21)
  - Infusion related reaction [Recovered/Resolved]
  - Feeling drunk [Unknown]
  - Vision blurred [Unknown]
  - Fatigue [Unknown]
  - Balance disorder [Unknown]
  - Dizziness [Recovered/Resolved]
  - Fall [Unknown]
  - Metamorphopsia [Unknown]
  - Hemiparesis [Recovered/Resolved]
  - Amnesia [Not Recovered/Not Resolved]
  - Dizziness [Unknown]
  - Gait disturbance [Unknown]
  - Photophobia [Unknown]
  - Chest discomfort [Recovered/Resolved]
  - Anxiety [Not Recovered/Not Resolved]
  - Asthenia [Unknown]
  - Throat irritation [Recovered/Resolved]
  - Metamorphopsia [Recovered/Resolved]
  - Throat irritation [Recovered/Resolved]
  - Cardiac flutter [Recovered/Resolved]
  - Balance disorder [Recovered/Resolved]

NARRATIVE: CASE EVENT DATE: 201804
